FAERS Safety Report 14373473 (Version 2)
Quarter: 2018Q1

REPORT INFORMATION
  Report Type: Spontaneous
  Country: US (occurrence: US)
  Receive Date: 20180110
  Receipt Date: 20180126
  Transmission Date: 20180509
  Serious: No
  Sender: FDA-Public Use
  Company Number: US-LUNDBECK-DKLU2033126

PATIENT
  Sex: Female

DRUGS (1)
  1. NORTHERA [Suspect]
     Active Substance: DROXIDOPA
     Indication: PRODUCT USED FOR UNKNOWN INDICATION
     Dosage: SCHEDULE A
     Route: 048
     Dates: end: 201707

REACTIONS (4)
  - Palpitations [Recovered/Resolved]
  - Syncope [Recovered/Resolved]
  - Headache [Recovered/Resolved]
  - Migraine [Recovered/Resolved]
